FAERS Safety Report 17550933 (Version 1)
Quarter: 2020Q1

REPORT INFORMATION
  Report Type: Spontaneous
  Country: US (occurrence: US)
  Receive Date: 20200317
  Receipt Date: 20200317
  Transmission Date: 20200409
  Serious: No
  Sender: FDA-Public Use
  Company Number: US-EYEVANCE PHARMACEUTICALS-2019EYE00069

PATIENT
  Age: 72 Year
  Sex: Female
  Weight: 79.37 kg

DRUGS (4)
  1. FLAREX [Suspect]
     Active Substance: FLUOROMETHOLONE ACETATE
     Indication: DRY EYE
     Dosage: 1 GTT IN EACH EYE, 3X/DAY
     Route: 047
     Dates: start: 20190923, end: 20190926
  2. REFRESH SOLUTION NOS [Suspect]
     Active Substance: CARBOXYMETHYLCELLULOSE SODIUM\GLYCERIN
     Dosage: UNK, 3X/DAY
     Route: 047
  3. ZOLOFT [Concomitant]
     Active Substance: SERTRALINE HYDROCHLORIDE
     Indication: BLOOD PRESSURE ABNORMAL
     Dosage: 25 MG, 1X/DAY
  4. FLAREX [Suspect]
     Active Substance: FLUOROMETHOLONE ACETATE
     Indication: EYE INFLAMMATION

REACTIONS (7)
  - Ocular discomfort [Not Recovered/Not Resolved]
  - Dry eye [Not Recovered/Not Resolved]
  - Eye pain [Not Recovered/Not Resolved]
  - Off label use [Recovered/Resolved]
  - Therapeutic product effect increased [Recovered/Resolved]
  - Eye irritation [Not Recovered/Not Resolved]
  - Drug ineffective [Recovered/Resolved]

NARRATIVE: CASE EVENT DATE: 2019
